FAERS Safety Report 4713511-6 (Version None)
Quarter: 2005Q3

REPORT INFORMATION
  Report Type: 
  Country: None (occurrence: None)
  Receive Date: 20050711
  Receipt Date: 20050629
  Transmission Date: 20060218
  Serious: Yes (Hospitalization, Other)
  Sender: FDA-Public Use
  Company Number: 2005083250

PATIENT
  Age: 77 Year
  Sex: Male

DRUGS (14)
  1. UNASYN [Suspect]
     Indication: PNEUMONIA ASPIRATION
     Dosage: 6 GRAM (3 GRAM,BID),INTRAVENOUS
     Route: 042
     Dates: start: 20050408, end: 20050418
  2. ACECOL (TEMOCAPRIL HYDROCHLORIDE) [Concomitant]
  3. CILOSTAZOL [Concomitant]
  4. NIVADIL (NILVADIPINE) [Concomitant]
  5. DIGOXIN [Concomitant]
  6. ASPIRIN [Concomitant]
  7. GLORIAMIN (AZULENE SODIUM SULFONATE, LEVOGLUTAMIDE) [Concomitant]
  8. VERAPAMIL HYDROCHLORIDE [Concomitant]
  9. LAC B (LACTOBACILLUS BIFIDUS, LYOPHILIZED) [Concomitant]
  10. BISOLVON (BROMHEXINE HYDROCHLORIDE) [Concomitant]
  11. SODIUM CHLORIDE 0.9% [Concomitant]
  12. LAXOBERON (SODIUM PICOSULFATE) [Concomitant]
  13. ISOSORBIDE DINITRATE [Concomitant]
  14. HOKUNALIN (TULOBUTEROL HYDROCHLORIDE) [Concomitant]

REACTIONS (2)
  - ANAEMIA [None]
  - ENTEROCOLITIS HAEMORRHAGIC [None]
